FAERS Safety Report 24064220 (Version 2)
Quarter: 2024Q3

REPORT INFORMATION
  Report Type: Report from Study
  Country: IN (occurrence: IN)
  Receive Date: 20240709
  Receipt Date: 20240912
  Transmission Date: 20241016
  Serious: Yes (Other)
  Sender: NOVARTIS
  Company Number: IN-002147023-PHHY2017IN014240

PATIENT
  Sex: Male

DRUGS (3)
  1. TASIGNA [Suspect]
     Active Substance: NILOTINIB
     Indication: Chronic myeloid leukaemia
     Dosage: 300 MG, BID
     Route: 048
     Dates: start: 20161024, end: 20170126
  2. TASIGNA [Suspect]
     Active Substance: NILOTINIB
     Dosage: 400 MG BID
     Route: 048
     Dates: start: 20161028
  3. TASIGNA [Suspect]
     Active Substance: NILOTINIB
     Dosage: 400 MG, BID
     Route: 048
     Dates: start: 20170127

REACTIONS (4)
  - Seizure [Recovered/Resolved]
  - White blood cell count increased [Not Recovered/Not Resolved]
  - Irritability [Unknown]
  - Malaise [Unknown]
